FAERS Safety Report 10928034 (Version 1)
Quarter: 2015Q1

REPORT INFORMATION
  Report Type: Spontaneous
  Country: US (occurrence: None)
  Receive Date: 20150317
  Receipt Date: 20150317
  Transmission Date: 20150721
  Serious: Yes (Hospitalization)
  Sender: FDA-Public Use
  Company Number: None

PATIENT
  Age: 12 Year
  Sex: Female
  Weight: 33.5 kg

DRUGS (9)
  1. DIVALPROEX DR [Suspect]
     Active Substance: DIVALPROEX SODIUM
     Indication: MOOD SWINGS
     Dosage: 1 TABLET BID ORAL
     Route: 048
  2. CHILDREN^S CETIRIZINE [Concomitant]
  3. METHOTREXATE [Concomitant]
     Active Substance: METHOTREXATE
  4. PREDNISOLONE ACETATE 1% [Concomitant]
     Active Substance: PREDNISOLONE ACETATE
  5. DIVALPROEX DR [Suspect]
     Active Substance: DIVALPROEX SODIUM
     Indication: SEIZURE
     Dosage: 1 TABLET BID ORAL
     Route: 048
  6. RISPERIDONE. [Concomitant]
     Active Substance: RISPERIDONE
  7. PEDIATRIC MULTIVITAMIN [Concomitant]
  8. FLUOXETINE [Concomitant]
     Active Substance: FLUOXETINE\FLUOXETINE HYDROCHLORIDE
  9. GUANFACINE. [Concomitant]
     Active Substance: GUANFACINE

REACTIONS (15)
  - Diarrhoea [None]
  - Urticaria [None]
  - Drug hypersensitivity [None]
  - Somnolence [None]
  - Liver function test abnormal [None]
  - Tremor [None]
  - Abnormal loss of weight [None]
  - Dizziness [None]
  - Polydipsia [None]
  - Blood albumin decreased [None]
  - Incontinence [None]
  - Mental status changes [None]
  - Withdrawal syndrome [None]
  - Blood lactic acid increased [None]
  - Vomiting [None]

NARRATIVE: CASE EVENT DATE: 20150310
